FAERS Safety Report 18155208 (Version 1)
Quarter: 2020Q3

REPORT INFORMATION
  Report Type: Spontaneous
  Country: US (occurrence: US)
  Receive Date: 20200817
  Receipt Date: 20200817
  Transmission Date: 20201103
  Serious: No
  Sender: FDA-Public Use
  Company Number: US-ALLERGAN-1931254US

PATIENT
  Sex: Male

DRUGS (2)
  1. ANDRODERM [Suspect]
     Active Substance: TESTOSTERONE
     Indication: BLOOD TESTOSTERONE DECREASED
     Dosage: 4 MG, QD
     Route: 062
  2. MULTIVITAMINS [Concomitant]
     Active Substance: VITAMINS
     Dosage: UNK

REACTIONS (2)
  - Product dose omission issue [Unknown]
  - Product primary packaging issue [Unknown]

NARRATIVE: CASE EVENT DATE: 201904
